FAERS Safety Report 9342293 (Version 4)
Quarter: 2013Q3

REPORT INFORMATION
  Report Type: Report from Study
  Country: DE (occurrence: DE)
  Receive Date: 20130611
  Receipt Date: 20130805
  Transmission Date: 20140515
  Serious: Yes (Death, Hospitalization, Other)
  Sender: FDA-Public Use
  Company Number: PHHY2013DE051248

PATIENT
  Sex: Male

DRUGS (5)
  1. ICL670A [Suspect]
     Indication: MYELODYSPLASTIC SYNDROME
     Dosage: 1625 MG, UNK
     Dates: start: 20120710
  2. VIDAZA [Concomitant]
     Dosage: 140 MG, UNK
     Dates: start: 20101210, end: 20121127
  3. PRIVIGEN//IMMUNOGLOBULIN HUMAN NORMAL [Concomitant]
     Dosage: 20 MG, UNK
     Dates: start: 20121212, end: 20121212
  4. IMMUNOSUPPRESSANTS [Concomitant]
     Dosage: UNK UKN, UNK
  5. CIPROBAY (CIPROFLOXACIN) [Concomitant]
     Dosage: UNK UKN, UNK

REACTIONS (9)
  - Acute leukaemia [Fatal]
  - General physical health deterioration [Fatal]
  - Haemorrhage [Fatal]
  - Necrosis [Fatal]
  - Haemoglobin decreased [Not Recovered/Not Resolved]
  - Creatinine renal clearance decreased [Not Recovered/Not Resolved]
  - Anaemia [Unknown]
  - Leukopenia [Unknown]
  - Thrombocytopenia [Unknown]
